FAERS Safety Report 18095767 (Version 5)
Quarter: 2021Q3

REPORT INFORMATION
  Report Type: Spontaneous
  Country: CN (occurrence: CN)
  Receive Date: 20200730
  Receipt Date: 20210831
  Transmission Date: 20211014
  Serious: Yes (Other)
  Sender: FDA-Public Use
  Company Number: NVSC2020CN083335

PATIENT
  Age: 53 Year
  Sex: Male

DRUGS (3)
  1. STARLIX [Suspect]
     Active Substance: NATEGLINIDE
     Dosage: 1 DF, TID
     Route: 048
  2. STARLIX [Suspect]
     Active Substance: NATEGLINIDE
     Indication: DIABETES MELLITUS
     Dosage: 1 DF, QD
     Route: 048
     Dates: start: 2014
  3. STARLIX [Suspect]
     Active Substance: NATEGLINIDE
     Dosage: 1 DF, QD
     Route: 048

REACTIONS (22)
  - Dizziness [Recovering/Resolving]
  - Pain in extremity [Not Recovered/Not Resolved]
  - Swelling [Not Recovered/Not Resolved]
  - Peripheral arterial occlusive disease [Unknown]
  - Cerebral atrophy [Unknown]
  - Lacunar infarction [Unknown]
  - Pain [Not Recovered/Not Resolved]
  - Vertigo [Unknown]
  - Memory impairment [Recovering/Resolving]
  - Mental disorder [Unknown]
  - Paralysis [Recovering/Resolving]
  - Restlessness [Not Recovered/Not Resolved]
  - Dry skin [Unknown]
  - Sinusitis [Unknown]
  - Diabetes mellitus [Not Recovered/Not Resolved]
  - Insomnia [Not Recovered/Not Resolved]
  - Headache [Not Recovered/Not Resolved]
  - Gangrene [Unknown]
  - Feeling abnormal [Recovering/Resolving]
  - Vasodilatation [Unknown]
  - Cervicobrachial syndrome [Unknown]
  - White matter lesion [Unknown]

NARRATIVE: CASE EVENT DATE: 20200329
